FAERS Safety Report 19283400 (Version 2)
Quarter: 2021Q2

REPORT INFORMATION
  Report Type: Spontaneous
  Country: BG (occurrence: BG)
  Receive Date: 20210520
  Receipt Date: 20210607
  Transmission Date: 20210717
  Serious: Yes (Other)
  Sender: FDA-Public Use
  Company Number: BG-INCYTE CORPORATION-2020IN006948

PATIENT

DRUGS (1)
  1. JAKAVI [Suspect]
     Active Substance: RUXOLITINIB
     Indication: MYELOFIBROSIS
     Dosage: 10 MG, DAILY
     Route: 048
     Dates: start: 20190708, end: 202009

REACTIONS (9)
  - Anaemia [Recovering/Resolving]
  - Aspartate aminotransferase increased [Recovering/Resolving]
  - Lymphocyte count increased [Recovering/Resolving]
  - Blood bilirubin increased [Recovering/Resolving]
  - Leukocytosis [Recovering/Resolving]
  - Lymph node tuberculosis [Recovered/Resolved]
  - Neutrophil count increased [Unknown]
  - Granulocytes abnormal [Recovering/Resolving]
  - Thrombocytopenia [Recovering/Resolving]

NARRATIVE: CASE EVENT DATE: 2020
